FAERS Safety Report 6938203-4 (Version None)
Quarter: 2010Q3

REPORT INFORMATION
  Report Type: 
  Country: None (occurrence: None)
  Receive Date: 20100824
  Receipt Date: 20100811
  Transmission Date: 20110219
  Serious: Yes (Other)
  Sender: FDA-Public Use
  Company Number: PHHY2010CA53259

PATIENT
  Sex: Male

DRUGS (3)
  1. CLOZARIL [Suspect]
     Dosage: 400 MG DAILY
     Dates: start: 19991207
  2. CIPROFLOXACIN HYDROCHLORIDE [Concomitant]
     Dosage: 20 MG DAILY
  3. RISPERIDONE [Concomitant]
     Dosage: 2 MG DAILY

REACTIONS (4)
  - HYDRONEPHROSIS [None]
  - MALAISE [None]
  - RENAL FAILURE [None]
  - SOMNOLENCE [None]
